FAERS Safety Report 9041029 (Version 1)
Quarter: 2013Q1

REPORT INFORMATION
  Report Type: Spontaneous
  Country: US (occurrence: None)
  Receive Date: 20130123
  Receipt Date: 20130123
  Transmission Date: 20140127
  Serious: Yes (Other)
  Sender: FDA-Public Use
  Company Number: None

PATIENT
  Age: 53 Year
  Sex: Female
  Weight: 71.67 kg

DRUGS (1)
  1. ZYRTEC 10MG MCNEIL CONSUMER HEALTHCARE [Suspect]
     Indication: RHINITIS ALLERGIC
     Dosage: 10MG  1 DAILY  MOUTH
     Route: 048
     Dates: start: 20121015, end: 20121204

REACTIONS (3)
  - Movement disorder [None]
  - Gait disturbance [None]
  - Joint stiffness [None]
